FAERS Safety Report 17760582 (Version 1)
Quarter: 2020Q2

REPORT INFORMATION
  Report Type: Spontaneous
  Country: BR (occurrence: BR)
  Receive Date: 20200508
  Receipt Date: 20200508
  Transmission Date: 20200714
  Serious: Yes (Disabling)
  Sender: FDA-Public Use
  Company Number: BR-PFIZER INC-2020184277

PATIENT
  Age: 81 Year
  Sex: Female

DRUGS (4)
  1. METFORMIN/VILDAGLIPTIN [Concomitant]
     Active Substance: METFORMIN\VILDAGLIPTIN
     Dosage: UNK
  2. AMLODIPINE [Concomitant]
     Active Substance: AMLODIPINE BESYLATE
     Dosage: UNK
  3. EPOETIN ALFA [Concomitant]
     Active Substance: ERYTHROPOIETIN
     Dosage: 4000
  4. TALIGLUCERASE ALFA [Suspect]
     Active Substance: TALIGLUCERASE ALFA
     Indication: GAUCHER^S DISEASE
     Dosage: UNK
     Route: 042

REACTIONS (6)
  - Dizziness [Unknown]
  - Fall [Unknown]
  - Tooth fracture [Unknown]
  - Limb injury [Unknown]
  - Haematocrit decreased [Unknown]
  - Upper limb fracture [Unknown]
